FAERS Safety Report 15264053 (Version 1)
Quarter: 2018Q4

REPORT INFORMATION
  Report Type: Spontaneous
  Country: CN (occurrence: CN)
  Receive Date: 20180810
  Receipt Date: 20180810
  Transmission Date: 20190204
  Serious: Yes (Other)
  Sender: FDA-Public Use
  Company Number: CN-TERSERA THERAPEUTICS LLC-TSR2018001856

PATIENT

DRUGS (1)
  1. ZOLADEX [Suspect]
     Active Substance: GOSERELIN ACETATE
     Indication: PRODUCT USED FOR UNKNOWN INDICATION
     Dosage: 3.6 MILLIGRAM, UNK
     Route: 058
     Dates: start: 20180619, end: 20180619

REACTIONS (1)
  - Hepatic function abnormal [Recovering/Resolving]
